FAERS Safety Report 20124760 (Version 1)
Quarter: 2021Q4

REPORT INFORMATION
  Report Type: Spontaneous
  Country: US (occurrence: None)
  Receive Date: 20211126
  Receipt Date: 20211126
  Transmission Date: 20220304
  Serious: Yes (Other)
  Sender: FDA-Public Use
  Company Number: None

PATIENT
  Age: 39 Year
  Sex: Male
  Weight: 78.75 kg

DRUGS (1)
  1. DEXEDRINE SPANSULE [Suspect]
     Active Substance: DEXTROAMPHETAMINE SULFATE

REACTIONS (8)
  - Blood pressure increased [None]
  - Irritability [None]
  - Anger [None]
  - Apathy [None]
  - Headache [None]
  - Anxiety [None]
  - Psychomotor hyperactivity [None]
  - Impaired work ability [None]

NARRATIVE: CASE EVENT DATE: 20211126
